FAERS Safety Report 6173794-5 (Version None)
Quarter: 2009Q2

REPORT INFORMATION
  Report Type: 
  Country: None (occurrence: None)
  Receive Date: 20090430
  Receipt Date: 20090303
  Transmission Date: 20091009
  Serious: Yes (Death, Hospitalization, Disabling)
  Sender: FDA-Public Use
  Company Number: IE-CELGENEUS-229-C5013-07061537

PATIENT
  Sex: Male
  Weight: 73 kg

DRUGS (4)
  1. CC-5013 [Suspect]
     Indication: MULTIPLE MYELOMA
     Route: 048
     Dates: start: 20070614, end: 20070623
  2. CC-5013 [Suspect]
     Route: 048
     Dates: start: 20070624, end: 20070706
  3. DEXAMETHASONE TAB [Suspect]
     Indication: MULTIPLE MYELOMA
     Route: 048
     Dates: start: 20070614, end: 20070623
  4. DEXAMETHASONE TAB [Suspect]
     Route: 048
     Dates: start: 20070624, end: 20070627

REACTIONS (3)
  - LOWER RESPIRATORY TRACT INFECTION [None]
  - MULTIPLE MYELOMA [None]
  - RENAL FAILURE ACUTE [None]
